FAERS Safety Report 6272148-0 (Version None)
Quarter: 2009Q3

REPORT INFORMATION
  Report Type: 
  Country: None (occurrence: None)
  Receive Date: 20090717
  Receipt Date: 20090706
  Transmission Date: 20100115
  Serious: Yes (Other)
  Sender: FDA-Public Use
  Company Number: US-PFIZER INC-2009219482

PATIENT
  Sex: Female
  Weight: 96.615 kg

DRUGS (17)
  1. LYRICA [Suspect]
     Indication: FIBROMYALGIA
     Dosage: UNK
     Dates: start: 20080101, end: 20090101
  2. METOPROLOL [Concomitant]
     Dosage: UNK
  3. DIGOXIN [Concomitant]
     Dosage: UNK
  4. OLMESARTAN [Concomitant]
     Dosage: UNK
  5. ACETYLSALICYLIC ACID [Concomitant]
     Dosage: UNK
  6. PHENOBARBITAL [Concomitant]
     Dosage: UNK
  7. CARISOPRODOL [Concomitant]
     Dosage: UNK
  8. HYDROXYZINE [Concomitant]
     Dosage: UNK
  9. PROTONIX [Concomitant]
     Dosage: UNK
  10. CYMBALTA [Concomitant]
     Dosage: UNK
  11. DILANTIN [Concomitant]
     Dosage: UNK
  12. EVOXAC [Concomitant]
     Dosage: UNK
  13. OMEGA-3 MARINE TRIGLYCERIDES [Concomitant]
     Dosage: UNK
  14. THYROID TAB [Concomitant]
     Dosage: UNK
  15. CYCLOSPORINE [Concomitant]
     Dosage: UNK
  16. TYLENOL (CAPLET) [Concomitant]
     Dosage: UNK
  17. MULTI-VITAMINS [Concomitant]
     Dosage: UNK

REACTIONS (4)
  - FATIGUE [None]
  - METABOLIC DISORDER [None]
  - SLEEP DISORDER [None]
  - WEIGHT INCREASED [None]
